FAERS Safety Report 5311501-6 (Version None)
Quarter: 2007Q2

REPORT INFORMATION
  Report Type: 
  Country: None (occurrence: None)
  Receive Date: 20070423
  Receipt Date: 20070423
  Transmission Date: 20071010
  Serious: Yes (Life-Threatening, Hospitalization, Other)
  Sender: FDA-Public Use
  Company Number: None

PATIENT
  Age: 55 Year
  Sex: Male
  Weight: 69.8539 kg

DRUGS (9)
  1. LINEZOLID TABLETS 600MG [Suspect]
     Indication: ANTIBIOTIC PROPHYLAXIS
     Dosage: 600 MG, PO BID
     Route: 048
     Dates: start: 20061013, end: 20061015
  2. LINEZOLID TABLETS 600MG [Suspect]
     Indication: PNEUMONIA STAPHYLOCOCCAL
     Dosage: 600 MG, PO BID
     Route: 048
     Dates: start: 20061013, end: 20061015
  3. ASPIRIN [Concomitant]
  4. CLINDAMYCIN HCL [Concomitant]
  5. HYDROCHLOROTHIAZIDE [Concomitant]
  6. LAMIVUDINE + ZIDOVUDINE [Concomitant]
  7. LISINOPRIL [Concomitant]
  8. NELFINAVIR MESYLATE [Concomitant]
  9. AMITRIPTYLINE HCL [Concomitant]

REACTIONS (7)
  - ASTHENIA [None]
  - CHEST DISCOMFORT [None]
  - DYSPNOEA EXERTIONAL [None]
  - HEADACHE [None]
  - IMPAIRED WORK ABILITY [None]
  - PANCYTOPENIA [None]
  - PARAESTHESIA [None]
